FAERS Safety Report 20883621 (Version 1)
Quarter: 2022Q2

REPORT INFORMATION
  Report Type: Report from Study
  Country: AR (occurrence: AR)
  Receive Date: 20220527
  Receipt Date: 20220527
  Transmission Date: 20220721
  Serious: Yes (Other)
  Sender: FDA-Public Use
  Company Number: AR-TAKEDA-2022TUS035311

PATIENT
  Age: 40 Year
  Sex: Male

DRUGS (1)
  1. VEDOLIZUMAB [Suspect]
     Active Substance: VEDOLIZUMAB
     Indication: Product used for unknown indication
     Dosage: UNK
     Route: 065
     Dates: start: 20220428

REACTIONS (4)
  - Colitis ulcerative [Unknown]
  - Vomiting [Unknown]
  - Arthralgia [Unknown]
  - Pruritus [Unknown]

NARRATIVE: CASE EVENT DATE: 20220513
